FAERS Safety Report 24338910 (Version 1)
Quarter: 2024Q3

REPORT INFORMATION
  Report Type: Spontaneous
  Country: US (occurrence: None)
  Receive Date: 20240918
  Receipt Date: 20240918
  Transmission Date: 20241016
  Serious: Yes (Hospitalization)
  Sender: Public
  Company Number: None

PATIENT
  Sex: Female

DRUGS (5)
  1. AMBRISENTAN [Suspect]
     Active Substance: AMBRISENTAN
     Indication: Pulmonary hypertension
     Dosage: FREQUENCY : DAILY;?
     Route: 048
  2. SYMBICORT [Concomitant]
     Active Substance: BUDESONIDE\FORMOTEROL FUMARATE DIHYDRATE
  3. UPTRAVI [Concomitant]
     Active Substance: SELEXIPAG
  4. GOODSENSE ASPIRIN [Concomitant]
  5. TADALAFIL [Suspect]
     Active Substance: TADALAFIL

REACTIONS (2)
  - Oxygen saturation decreased [None]
  - Therapy interrupted [None]
